FAERS Safety Report 24281867 (Version 2)
Quarter: 2024Q3

REPORT INFORMATION
  Report Type: Spontaneous
  Country: US (occurrence: US)
  Receive Date: 20240904
  Receipt Date: 20240924
  Transmission Date: 20241017
  Serious: Yes (Hospitalization, Other)
  Sender: PFIZER
  Company Number: US-PFIZER INC-202400247017

PATIENT
  Age: 67 Year
  Sex: Male
  Weight: 126.98 kg

DRUGS (7)
  1. LORLATINIB [Suspect]
     Active Substance: LORLATINIB
     Indication: Non-small cell lung cancer
     Dosage: 25 MG, 1X/DAY
     Route: 048
     Dates: start: 20240607, end: 20240616
  2. LORLATINIB [Suspect]
     Active Substance: LORLATINIB
     Indication: Brain neoplasm
  3. LORLATINIB [Suspect]
     Active Substance: LORLATINIB
     Indication: Lymphoma
  4. ATORVASTATIN [Concomitant]
     Active Substance: ATORVASTATIN
     Indication: Cardiac disorder
     Dosage: 40 MG, 1X/DAY
  5. ATORVASTATIN [Concomitant]
     Active Substance: ATORVASTATIN
     Indication: Blood cholesterol abnormal
  6. VIMPAT [Concomitant]
     Active Substance: LACOSAMIDE
     Indication: Seizure
     Dosage: 100 MG, 2X/DAY
  7. LASIX [Concomitant]
     Active Substance: FUROSEMIDE
     Indication: Fluid retention
     Dosage: 40 MG, 1X/DAY

REACTIONS (9)
  - Balance disorder [Recovering/Resolving]
  - Fall [Recovering/Resolving]
  - Retinal haemorrhage [Recovering/Resolving]
  - Subdural haematoma [Recovering/Resolving]
  - Seizure [Recovering/Resolving]
  - Disease recurrence [Recovering/Resolving]
  - Subarachnoid haemorrhage [Recovering/Resolving]
  - Subdural haemorrhage [Recovering/Resolving]
  - Cerebral haemorrhage [Recovering/Resolving]

NARRATIVE: CASE EVENT DATE: 20240616
